FAERS Safety Report 7569011-1 (Version None)
Quarter: 2011Q2

REPORT INFORMATION
  Report Type: 
  Country: None (occurrence: None)
  Receive Date: 20110623
  Receipt Date: 20110614
  Transmission Date: 20111010
  Serious: Yes (Hospitalization, Other)
  Sender: FDA-Public Use
  Company Number: US-ASTRAZENECA-2011SE36352

PATIENT
  Age: 58 Year
  Sex: Female

DRUGS (6)
  1. SIMVASTATIN [Concomitant]
  2. PLAVIX [Concomitant]
  3. TOPROL-XL [Suspect]
     Route: 048
  4. TOPROL-XL [Suspect]
     Route: 048
  5. MULTI-VITAMIN [Concomitant]
  6. GENERIC FOR ESTROGEN [Concomitant]

REACTIONS (1)
  - CEREBROVASCULAR ACCIDENT [None]
